FAERS Safety Report 22243110 (Version 2)
Quarter: 2023Q2

REPORT INFORMATION
  Report Type: Spontaneous
  Country: US (occurrence: None)
  Receive Date: 20230424
  Receipt Date: 20230503
  Transmission Date: 20230722
  Serious: Yes (Hospitalization, Other)
  Sender: FDA-Public Use
  Company Number: US-Hikma Pharmaceuticals USA Inc.-US-H14001-23-01231

PATIENT
  Sex: Female

DRUGS (1)
  1. PREDNISONE [Suspect]
     Active Substance: PREDNISONE
     Indication: Systemic lupus erythematosus
     Dosage: UNKNOWN
     Route: 065

REACTIONS (15)
  - Renal failure [Unknown]
  - Weight fluctuation [Unknown]
  - Fatigue [Unknown]
  - Pain [Unknown]
  - Arthralgia [Unknown]
  - Anxiety [Unknown]
  - Swelling [Unknown]
  - Raynaud^s phenomenon [Unknown]
  - Bone disorder [Unknown]
  - Mental status changes [Unknown]
  - Skin atrophy [Unknown]
  - Discomfort [Unknown]
  - Depression [Unknown]
  - Fluid retention [Unknown]
  - Adverse event [Unknown]
